FAERS Safety Report 16830911 (Version 1)
Quarter: 2019Q3

REPORT INFORMATION
  Report Type: Spontaneous
  Country: CN (occurrence: CN)
  Receive Date: 20190920
  Receipt Date: 20190920
  Transmission Date: 20191005
  Serious: Yes (Other)
  Sender: FDA-Public Use
  Company Number: CN-ROCHE-2402794

PATIENT
  Age: 11 Year
  Sex: Male
  Weight: 48 kg

DRUGS (2)
  1. RITUXAN [Suspect]
     Active Substance: RITUXIMAB
     Indication: VACCINATION COMPLICATION
     Route: 041
     Dates: start: 20190820, end: 20190820
  2. SODIUM CHLORIDE. [Concomitant]
     Active Substance: SODIUM CHLORIDE
     Route: 041
     Dates: start: 20190820, end: 20190820

REACTIONS (6)
  - Off label use [Unknown]
  - Sensation of foreign body [Recovering/Resolving]
  - Asthma [Recovered/Resolved]
  - Intentional product use issue [Unknown]
  - Chest discomfort [Recovered/Resolved]
  - Cough [Recovered/Resolved]

NARRATIVE: CASE EVENT DATE: 20190820
